FAERS Safety Report 7638122-4 (Version None)
Quarter: 2011Q3

REPORT INFORMATION
  Report Type: 
  Country: None (occurrence: None)
  Receive Date: 20110727
  Receipt Date: 20110713
  Transmission Date: 20111222
  Serious: Yes (Hospitalization)
  Sender: FDA-Public Use
  Company Number: US-RANBAXY-2011RR-46324

PATIENT
  Sex: Female

DRUGS (10)
  1. LEVAQUIN [Suspect]
     Indication: PSEUDOMONAS INFECTION
  2. LEVAQUIN [Suspect]
     Indication: PRODUCT USED FOR UNKNOWN INDICATION
     Dosage: 500 MG, UNK
     Route: 042
  3. LEVAQUIN [Suspect]
  4. LOMEFLOXACIN [Suspect]
     Indication: PRODUCT USED FOR UNKNOWN INDICATION
     Route: 065
  5. LEVAQUIN [Suspect]
  6. LEVAQUIN [Suspect]
     Indication: BRONCHITIS
  7. LEVAQUIN [Suspect]
     Dosage: 500 MG, UNK
     Route: 065
  8. LEVAQUIN [Suspect]
     Dosage: 750 MG, UNK
     Route: 065
  9. CIPROFLOXACIN [Suspect]
     Indication: SINUSITIS
     Dosage: UNK
     Route: 065
  10. LEVAQUIN [Suspect]
     Indication: PNEUMONIA
     Dosage: UNK
     Route: 048
     Dates: start: 20060101, end: 20081231

REACTIONS (9)
  - DIARRHOEA [None]
  - PAIN IN EXTREMITY [None]
  - ARTHRALGIA [None]
  - TENDON DISORDER [None]
  - RASH [None]
  - TENDON PAIN [None]
  - TENDONITIS [None]
  - PLANTAR FASCIITIS [None]
  - EPICONDYLITIS [None]
